FAERS Safety Report 6454683-5 (Version None)
Quarter: 2009Q4

REPORT INFORMATION
  Report Type: 
  Country: None (occurrence: None)
  Receive Date: 20091118
  Receipt Date: 20091104
  Transmission Date: 20100525
  Serious: Yes (Death, Life-Threatening, Hospitalization)
  Sender: FDA-Public Use
  Company Number: DE-1171439

PATIENT
  Age: 81 Year
  Sex: Female

DRUGS (4)
  1. FLUORESCITE [Suspect]
     Dosage: 3.5 ML, INTRAVENOUS BOLUS
     Route: 040
  2. BISOPROLOL (BISOPROLOL FUMARATE) [Concomitant]
  3. LISINOPRIL [Concomitant]
  4. ASPIRIN [Concomitant]

REACTIONS (1)
  - MYOCARDIAL INFARCTION [None]
